FAERS Safety Report 10084738 (Version 1)
Quarter: 2014Q2

REPORT INFORMATION
  Report Type: Report from Study
  Country: NO (occurrence: NO)
  Receive Date: 20140417
  Receipt Date: 20140417
  Transmission Date: 20141212
  Serious: Yes (Hospitalization)
  Sender: FDA-Public Use
  Company Number: NO-GLAXOSMITHKLINE-B0986445A

PATIENT
  Age: 56 Year
  Sex: Male
  Weight: 96 kg

DRUGS (11)
  1. OMEGA-3-ACID ETHYL ESTERS [Suspect]
     Indication: PRODUCT USED FOR UNKNOWN INDICATION
     Dosage: 1000MG THREE TIMES PER DAY
     Route: 048
  2. PREDNISOLONE [Concomitant]
     Dosage: 10MG PER DAY
     Route: 048
  3. PROGRAF [Concomitant]
     Dosage: 4MG TWICE PER DAY
     Route: 048
  4. TACROLIMUS [Concomitant]
     Route: 042
  5. MYFORTIC [Concomitant]
     Dosage: 720MG TWICE PER DAY
     Route: 048
  6. MYCOPHENOLATE MOFETIL [Concomitant]
     Route: 042
  7. SOMAC [Concomitant]
     Dosage: 40MG TWICE PER DAY
     Route: 048
  8. ADALAT OROS [Concomitant]
     Dosage: 30MG TWICE PER DAY
     Route: 048
  9. FOLIC ACID [Concomitant]
     Dosage: .4UG PER DAY
     Route: 048
  10. FLUVASTATIN [Concomitant]
     Dosage: 80MG PER DAY
     Route: 048
  11. BACTRIM [Concomitant]
     Dosage: 1TAB PER DAY
     Route: 048

REACTIONS (2)
  - Diarrhoea [Recovering/Resolving]
  - Dehydration [Recovering/Resolving]
